FAERS Safety Report 13716889 (Version 1)
Quarter: 2017Q3

REPORT INFORMATION
  Report Type: Spontaneous
  Country: US (occurrence: US)
  Receive Date: 20170703
  Receipt Date: 20170703
  Transmission Date: 20171127
  Serious: Yes (Other)
  Sender: FDA-Public Use
  Company Number: None

PATIENT
  Age: 52 Year
  Sex: Female
  Weight: 68.4 kg

DRUGS (3)
  1. VITIAMINS [Concomitant]
  2. ATORVASTATIN [Suspect]
     Active Substance: ATORVASTATIN
     Indication: BLOOD CHOLESTEROL INCREASED
     Dosage: ?          OTHER STRENGTH:MG/MG;QUANTITY:90 TABLET(S);?
     Route: 048
     Dates: end: 20170703
  3. MSM DULOLAX [Concomitant]

REACTIONS (3)
  - Amnesia [None]
  - Fatigue [None]
  - Vision blurred [None]

NARRATIVE: CASE EVENT DATE: 20170627
